FAERS Safety Report 8829628 (Version 2)
Quarter: 2012Q4

REPORT INFORMATION
  Report Type: 
  Country: US (occurrence: US)
  Receive Date: 20121008
  Receipt Date: 20121018
  Transmission Date: 20130627
  Serious: Yes (Other)
  Sender: FDA-Public Use
  Company Number: US-PFIZER INC-2012246625

PATIENT
  Age: 81 Year
  Sex: Female
  Weight: 54.42 kg

DRUGS (4)
  1. NEURONTIN [Suspect]
     Indication: NEUROPATHY PERIPHERAL
     Dosage: 100 mg, 3x/day
  2. LYRICA [Suspect]
     Indication: NEUROPATHY PERIPHERAL
     Dosage: 75 mg, 1x/day
     Route: 048
     Dates: start: 201209, end: 201209
  3. LYRICA [Suspect]
     Indication: PAIN IN EXTREMITY
  4. LYRICA [Suspect]
     Indication: PAIN

REACTIONS (4)
  - Diplopia [Recovering/Resolving]
  - Depression [Recovered/Resolved]
  - Drug ineffective [Unknown]
  - Pain in extremity [Unknown]
